FAERS Safety Report 7685092-9 (Version None)
Quarter: 2011Q3

REPORT INFORMATION
  Report Type: 
  Country: None (occurrence: None)
  Receive Date: 20110816
  Receipt Date: 20110808
  Transmission Date: 20111222
  Serious: Yes (Other)
  Sender: FDA-Public Use
  Company Number: US-CEPHALON-2009010909

PATIENT
  Sex: Female

DRUGS (2)
  1. PROVIGIL [Suspect]
     Indication: SLEEP APNOEA SYNDROME
     Route: 048
     Dates: start: 20050101
  2. LAMICTAL [Suspect]

REACTIONS (3)
  - TONGUE ULCERATION [None]
  - OESOPHAGEAL STENOSIS [None]
  - DYSPNOEA [None]
